FAERS Safety Report 7275093-7 (Version None)
Quarter: 2011Q1

REPORT INFORMATION
  Report Type: 
  Country: None (occurrence: None)
  Receive Date: 20110204
  Receipt Date: 20110124
  Transmission Date: 20110831
  Serious: Yes (Hospitalization)
  Sender: FDA-Public Use
  Company Number: DE-NOVOPROD-315993

PATIENT
  Sex: Male
  Weight: 150 kg

DRUGS (7)
  1. METOPROLOL TARTRATE [Concomitant]
     Dosage: UNK
     Route: 048
     Dates: start: 20060101
  2. ASPIRIN [Concomitant]
     Dosage: UNK
     Route: 048
     Dates: start: 20060101
  3. VICTOZA [Suspect]
     Indication: TYPE 2 DIABETES MELLITUS
     Dosage: 1.8 MG, QD
     Route: 058
     Dates: start: 20100512, end: 20101001
  4. METFORMIN [Concomitant]
     Dosage: UNK
     Route: 048
     Dates: start: 20060101
  5. SIMVASTATIN [Concomitant]
     Dosage: UNK
     Route: 048
     Dates: start: 20060101
  6. FUROSEMID                          /00032601/ [Concomitant]
     Dosage: UNK
     Route: 048
     Dates: start: 20060101
  7. LEVOTHYROXINE SODIUM [Concomitant]
     Dosage: UNK
     Route: 048

REACTIONS (1)
  - CHOLECYSTITIS CHRONIC [None]
